FAERS Safety Report 7164600-0 (Version None)
Quarter: 2010Q4

REPORT INFORMATION
  Report Type: 
  Country: None (occurrence: None)
  Receive Date: 20101215
  Receipt Date: 20101210
  Transmission Date: 20110411
  Serious: Yes (Death, Hospitalization)
  Sender: FDA-Public Use
  Company Number: TN-SANOFI-AVENTIS-2010SA075218

PATIENT
  Age: 59 Year
  Sex: Male

DRUGS (5)
  1. PLAVIX [Suspect]
     Indication: ACUTE CORONARY SYNDROME
     Route: 048
     Dates: start: 20100226, end: 20100318
  2. PLAVIX [Suspect]
     Indication: CORONARY ARTERIAL STENT INSERTION
     Route: 048
     Dates: start: 20100226, end: 20100318
  3. KARDEGIC [Concomitant]
     Route: 048
     Dates: end: 20100318
  4. CORVASAL [Concomitant]
     Route: 048
     Dates: end: 20100318
  5. PANTOPRAZOLE [Concomitant]
     Route: 048
     Dates: end: 20100318

REACTIONS (1)
  - LUNG INFECTION [None]
